FAERS Safety Report 10885445 (Version 1)
Quarter: 2015Q1

REPORT INFORMATION
  Report Type: Spontaneous
  Country: SI (occurrence: SI)
  Receive Date: 20150304
  Receipt Date: 20150304
  Transmission Date: 20150721
  Serious: Yes (Hospitalization)
  Sender: FDA-Public Use
  Company Number: SI-MERCK-1411SVN010782

PATIENT
  Age: 60 Year
  Sex: Male

DRUGS (26)
  1. AMPRIL [Concomitant]
     Dosage: 5 MG, Q24H
     Route: 048
  2. KALINOR [Concomitant]
     Active Substance: POTASSIUM CITRATE
     Dosage: 40MMOL K, QD
     Dates: start: 20120227, end: 20120228
  3. PROGRAF [Concomitant]
     Active Substance: TACROLIMUS\TACROLIMUS ANHYDROUS
     Dosage: 1.5 MG, Q12H
     Route: 048
     Dates: start: 20120224, end: 20120228
  4. KALINOR [Concomitant]
     Active Substance: POTASSIUM CITRATE
     Dosage: 40MMOL K,QD
     Dates: start: 20120217, end: 20120221
  5. FLOXACILLIN [Concomitant]
     Active Substance: FLUCLOXACILLIN
     Dosage: 2000 MG, Q6H
     Route: 042
  6. ALENDRONIC ACID [Concomitant]
     Active Substance: ALENDRONIC ACID
     Dosage: 70 MG, QW
     Route: 048
     Dates: start: 20120216, end: 20120223
  7. NOXAFIL [Suspect]
     Active Substance: POSACONAZOLE
     Indication: LOCALISED INFECTION
     Dosage: 400 MG, Q12H
     Route: 048
     Dates: start: 201111, end: 20120226
  8. NOXAFIL [Interacting]
     Active Substance: POSACONAZOLE
     Indication: FUNGAL INFECTION
  9. PROGRAF [Concomitant]
     Active Substance: TACROLIMUS\TACROLIMUS ANHYDROUS
     Dosage: UNK
     Route: 048
     Dates: start: 2005
  10. MYFORTIC [Concomitant]
     Active Substance: MYCOPHENOLATE SODIUM
     Indication: IMMUNOSUPPRESSION
     Dosage: 360 MG, Q8H
  11. KALINOR [Concomitant]
     Active Substance: POTASSIUM CITRATE
     Dosage: 40MMOL K Q12H
     Dates: start: 20120220
  12. ROCALTROL [Concomitant]
     Active Substance: CALCITRIOL
     Dosage: 0.25 MICROGRAM, Q12H
     Route: 048
  13. ALLOPURINOL. [Concomitant]
     Active Substance: ALLOPURINOL
     Dosage: 100 MG, QD
     Route: 048
  14. KALINOR [Concomitant]
     Active Substance: POTASSIUM CITRATE
     Dosage: 40MMOL K,QD
     Dates: start: 20120224, end: 20120225
  15. KLIMICIN [Concomitant]
     Active Substance: CLINDAMYCIN PHOSPHATE
     Dosage: 600 MG, Q8H
     Route: 048
  16. PROGRAF [Concomitant]
     Active Substance: TACROLIMUS\TACROLIMUS ANHYDROUS
     Indication: IMMUNOSUPPRESSION
     Dosage: 0.5 MG, Q24H
     Route: 048
     Dates: start: 20120213, end: 20120219
  17. DIUVER [Concomitant]
     Active Substance: TORSEMIDE
     Dosage: 5 MG, QD
     Route: 048
  18. CONCOR [Concomitant]
     Active Substance: BISOPROLOL FUMARATE
     Dosage: 2.5 MG, Q12H
     Route: 048
  19. NOVORAPID [Concomitant]
     Active Substance: INSULIN ASPART
     Dosage: BEFORE MEALS
     Route: 058
  20. LEKADOL [Concomitant]
     Active Substance: ACETAMINOPHEN
     Dosage: 500 MG, PRN
     Route: 048
     Dates: start: 20120220, end: 20120228
  21. MEDROL [Concomitant]
     Active Substance: METHYLPREDNISOLONE
     Indication: IMMUNOSUPPRESSION
     Dosage: 6 MG, QD
     Route: 048
     Dates: start: 2005
  22. PROGRAF [Concomitant]
     Active Substance: TACROLIMUS\TACROLIMUS ANHYDROUS
     Dosage: 2 MG, Q24H
     Route: 048
     Dates: start: 20120220, end: 20120220
  23. PROGRAF [Concomitant]
     Active Substance: TACROLIMUS\TACROLIMUS ANHYDROUS
     Dosage: 1 MG, Q12H
     Route: 048
     Dates: start: 20120221, end: 20120224
  24. CIPROBAY [Concomitant]
     Active Substance: CIPROFLOXACIN
     Dosage: 400 MG, Q12H
     Route: 042
     Dates: start: 20120213, end: 20120215
  25. LAMISIL (TERBINAFINE HYDROCHLORIDE) [Concomitant]
     Dosage: 10MG/G
     Route: 061
     Dates: start: 20120213, end: 20120226
  26. NOLPAZA [Concomitant]
     Active Substance: PANTOPRAZOLE SODIUM
     Dosage: 40 MG, QD

REACTIONS (2)
  - Drug interaction [Unknown]
  - Gastrointestinal haemorrhage [Unknown]

NARRATIVE: CASE EVENT DATE: 201112
